FAERS Safety Report 7892390-2 (Version None)
Quarter: 2011Q4

REPORT INFORMATION
  Report Type: 
  Country: None (occurrence: None)
  Receive Date: 20111103
  Receipt Date: 20111103
  Transmission Date: 20120403
  Serious: Yes (Hospitalization)
  Sender: FDA-Public Use
  Company Number: None

PATIENT
  Sex: Female
  Weight: 76.4311 kg

DRUGS (11)
  1. DIFLUCAN [Concomitant]
  2. BENDAMUSTINE [Suspect]
     Indication: LUNG NEOPLASM MALIGNANT
     Dosage: 120MG/M2 ON DAYS 1 AND 2 OF 21 DAY CYCLE
     Dates: start: 20110629
  3. BENDAMUSTINE [Suspect]
     Indication: LUNG NEOPLASM MALIGNANT
     Dosage: 120MG/M2 ON DAYS 1 AND 2 OF 21 DAY CYCLE
     Dates: start: 20111013
  4. XANAX [Concomitant]
  5. OXYBUTYNIN [Concomitant]
  6. PAXIL [Concomitant]
  7. LISINOPRIL AND HYDROCHLOROTHIAZIDE [Concomitant]
  8. HYDROCHLOROTHIAZIDE [Concomitant]
  9. MAGIC MOUTHWASH [Concomitant]
  10. HYDROCODONE BITARTRATE [Concomitant]
  11. FILGRASTIM [Concomitant]

REACTIONS (2)
  - FEMORAL NECK FRACTURE [None]
  - FALL [None]
